FAERS Safety Report 18688052 (Version 1)
Quarter: 2020Q4

REPORT INFORMATION
  Report Type: Spontaneous
  Country: GB (occurrence: GB)
  Receive Date: 20201231
  Receipt Date: 20201231
  Transmission Date: 20210114
  Serious: Yes (Other)
  Sender: FDA-Public Use
  Company Number: GB-ACCORD-212561

PATIENT
  Age: 89 Year
  Sex: Female
  Weight: 63.29 kg

DRUGS (11)
  1. LORAZEPAM. [Concomitant]
     Active Substance: LORAZEPAM
  2. RIVASTIGMINE/RIVASTIGMINE TARTRATE [Concomitant]
     Active Substance: RIVASTIGMINE
  3. ARIPIPRAZOLE. [Suspect]
     Active Substance: ARIPIPRAZOLE
     Indication: ACUTE PSYCHOSIS
     Route: 048
     Dates: start: 20201106, end: 20201207
  4. LISINOPRIL. [Concomitant]
     Active Substance: LISINOPRIL
  5. KETOPROFEN/KETOPROFEN ARGINATE/KETOPROFEN LYSINE/KETOPROFEN SODIUM [Concomitant]
     Active Substance: KETOPROFEN
  6. CHLORPHENAMINE/CHLORPHENAMINE MALEATE/CHLORPHENAMINE RESINATE/CHLORPHENAMINE TANNATE [Concomitant]
     Active Substance: CHLORPHENIRAMINE
  7. MACROGOL/MACROGOL STEARATE [Concomitant]
     Active Substance: POLYETHYLENE GLYCOLS
  8. PARACETAMOL [Concomitant]
     Active Substance: ACETAMINOPHEN
  9. BISOPROLOL [Concomitant]
     Active Substance: BISOPROLOL
  10. AFLIBERCEPT [Concomitant]
     Active Substance: AFLIBERCEPT
  11. CLOBETASONE/CLOBETASONE BUTYRATE [Concomitant]

REACTIONS (3)
  - White blood cell count decreased [Not Recovered/Not Resolved]
  - Neutropenia [Not Recovered/Not Resolved]
  - Lymphocyte count decreased [Not Recovered/Not Resolved]

NARRATIVE: CASE EVENT DATE: 20201203
